FAERS Safety Report 7319176-1 (Version None)
Quarter: 2011Q1

REPORT INFORMATION
  Report Type: 
  Country: None (occurrence: None)
  Receive Date: 20110216
  Receipt Date: 20110210
  Transmission Date: 20110831
  Serious: Yes (Hospitalization)
  Sender: FDA-Public Use
  Company Number: CIP11000289

PATIENT
  Age: 82 Year
  Sex: Male

DRUGS (3)
  1. CALCIUM [Concomitant]
  2. ACTONEL [Suspect]
     Dosage: 150MG ONE DOSE ONLY, ORAL
     Route: 048
     Dates: start: 20110208, end: 20110208
  3. VITAMIN D [Concomitant]

REACTIONS (4)
  - PYREXIA [None]
  - TREMOR [None]
  - DIZZINESS [None]
  - FALL [None]
